FAERS Safety Report 23962196 (Version 1)
Quarter: 2024Q2

REPORT INFORMATION
  Report Type: Spontaneous
  Country: BR (occurrence: BR)
  Receive Date: 20240611
  Receipt Date: 20240611
  Transmission Date: 20240715
  Serious: Yes (Hospitalization, Other)
  Sender: FDA-Public Use
  Company Number: BR-SA-SAC20240529000738

PATIENT

DRUGS (21)
  1. SABRIL [Suspect]
     Active Substance: VIGABATRIN
     Indication: Epilepsy
     Dosage: 1.5 DF, TID (GIVE 1.5 TABLETS IN THE MORNING, IN THE AFTERNOON AND AT NIGHT)
  2. PHENOBARBITAL [Concomitant]
     Active Substance: PHENOBARBITAL
     Indication: Product used for unknown indication
     Dosage: 30 DROP, BID
  3. PHENOBARBITAL [Concomitant]
     Active Substance: PHENOBARBITAL
     Dosage: 2.5 MG/KG, BID
  4. OMEPRAZOLE [Concomitant]
     Active Substance: DONEPEZIL HYDROCHLORIDE\OMEPRAZOLE\OMEPRAZOLE MAGNESIUM
     Indication: Product used for unknown indication
     Dosage: 20 MG, QD
     Dates: start: 20230530
  5. ONDANSETRON [Concomitant]
     Active Substance: ONDANSETRON
     Indication: Product used for unknown indication
     Dosage: 0.15 MG/KG, TID
  6. TOPIRAMATE [Concomitant]
     Active Substance: TOPIRAMATE
     Indication: Product used for unknown indication
     Dosage: 25 MG, TID
  7. TOPIRAMATE [Concomitant]
     Active Substance: TOPIRAMATE
     Dosage: 25 MG, TID (GIVE ONE TABLET IN THE MORNING, ONE IN THE AFTERNOON AND ONE AT NIGHT)
  8. TOPIRAMATE [Concomitant]
     Active Substance: TOPIRAMATE
     Dosage: 37.5 MG, TID
  9. ALBUTEROL [Concomitant]
     Active Substance: ALBUTEROL
     Indication: Product used for unknown indication
     Dosage: 4 UNK, QID (4 PUFFS EVERY 6H)
  10. ALBUTEROL [Concomitant]
     Active Substance: ALBUTEROL
     Dosage: 6 UNK, Q2H (6 PUFFS EVERY 2H)
  11. ATROPINE [Concomitant]
     Active Substance: ATROPINE\ATROPINE SULFATE
     Indication: Product used for unknown indication
     Dosage: 1 DROP, PRN
     Route: 060
  12. ESOMEPRAZOLE [Concomitant]
     Active Substance: ESOMEPRAZOLE
     Indication: Product used for unknown indication
     Dosage: 20 MG, QD
  13. CLOBAZAM [Concomitant]
     Active Substance: CLOBAZAM
     Indication: Seizure
     Dosage: 5 MG, BID
  14. VALPROIC ACID [Concomitant]
     Active Substance: VALPROIC ACID
     Indication: Product used for unknown indication
     Dosage: 60 MG, TID (15 MG/KG/DAY)
  15. CHLORPROMAZINE [Concomitant]
     Active Substance: CHLORPROMAZINE
     Indication: Product used for unknown indication
     Dosage: 3 DROP, BID
  16. DOMPERIDONE [Concomitant]
     Active Substance: DOMPERIDONE
     Indication: Product used for unknown indication
     Dosage: 0.3 MG/KG, TID
  17. HYPROMELLOSES [Concomitant]
     Active Substance: HYPROMELLOSES
     Indication: Product used for unknown indication
     Dosage: UNK, Q4H
  18. DIPYRONE [Concomitant]
     Active Substance: DIPYRONE
     Indication: Product used for unknown indication
     Dosage: 20 MG/KG, PRN
  19. AMOXICILLIN\CLAVULANIC ACID [Concomitant]
     Active Substance: AMOXICILLIN\CLAVULANIC ACID
     Indication: Product used for unknown indication
     Dosage: 50 MG/KG, BID
     Dates: start: 20100930
  20. CEPHALEXIN [Concomitant]
     Active Substance: CEPHALEXIN
     Indication: Product used for unknown indication
     Dosage: 50 MG/KG, QID
  21. BECLOMETHASONE DIPROPIONATE [Concomitant]
     Active Substance: BECLOMETHASONE DIPROPIONATE
     Indication: Product used for unknown indication
     Dosage: 250 UG, Q12H

REACTIONS (19)
  - Seizure [Unknown]
  - Muscle spasms [Unknown]
  - Condition aggravated [Unknown]
  - Asthenia [Unknown]
  - Salivary hypersecretion [Unknown]
  - Stress [Unknown]
  - Somnolence [Unknown]
  - Vomiting [Unknown]
  - Dyspnoea [Unknown]
  - Seizure [Recovered/Resolved]
  - Weight decreased [Unknown]
  - Hypopituitarism [Unknown]
  - Cough [Unknown]
  - Hypernatraemia [Unknown]
  - Poor quality product administered [Unknown]
  - Sensory loss [Unknown]
  - Motor dysfunction [Unknown]
  - Polyuria [Unknown]
  - Wrong technique in product usage process [Unknown]

NARRATIVE: CASE EVENT DATE: 20230508
